FAERS Safety Report 8258161-2 (Version None)
Quarter: 2012Q2

REPORT INFORMATION
  Report Type: 
  Country: None (occurrence: None)
  Receive Date: 20120404
  Receipt Date: 20120329
  Transmission Date: 20120825
  Serious: Yes (Hospitalization)
  Sender: FDA-Public Use
  Company Number: PHHY2011FR86603

PATIENT
  Sex: Female

DRUGS (8)
  1. CLORAZEPATE DIPOTASSIUM [Concomitant]
     Dosage: UNK
  2. OMEPRAZOLE [Concomitant]
  3. MORPHINE SULFATE [Concomitant]
  4. CYMBALTA [Concomitant]
  5. LEVOTHYROXINE SODIUM [Concomitant]
  6. VOLTAREN [Suspect]
     Dosage: 75 MG, UNK
     Route: 048
     Dates: end: 20110505
  7. XANAX [Concomitant]
  8. FENOFIBRATE [Concomitant]

REACTIONS (12)
  - BLOOD CREATININE INCREASED [None]
  - C-REACTIVE PROTEIN INCREASED [None]
  - RENAL FAILURE [None]
  - CREATININE RENAL CLEARANCE DECREASED [None]
  - HYPOTENSION [None]
  - SYSTEMIC INFLAMMATORY RESPONSE SYNDROME [None]
  - SERUM FERRITIN INCREASED [None]
  - HAEMOGLOBIN DECREASED [None]
  - BLOOD THYROID STIMULATING HORMONE INCREASED [None]
  - SEPSIS [None]
  - NEUTROPHIL COUNT INCREASED [None]
  - BLOOD THYROID STIMULATING HORMONE DECREASED [None]
